FAERS Safety Report 8564225-6 (Version None)
Quarter: 2012Q3

REPORT INFORMATION
  Report Type: 
  Country: None (occurrence: None)
  Receive Date: 20120803
  Receipt Date: 20120731
  Transmission Date: 20120928
  Serious: Yes (Other)
  Sender: FDA-Public Use
  Company Number: US-JNJFOC-20120604194

PATIENT
  Sex: Female

DRUGS (6)
  1. ARAVA [Concomitant]
     Indication: RHEUMATOID ARTHRITIS
  2. OMEPRAZOLE [Concomitant]
     Indication: GASTROOESOPHAGEAL REFLUX DISEASE
  3. SIMPONI [Suspect]
     Indication: RHEUMATOID ARTHRITIS
     Route: 058
     Dates: end: 20120301
  4. MOBIC [Concomitant]
     Indication: RHEUMATOID ARTHRITIS
  5. LEVOXYL [Concomitant]
     Indication: THYROID DISORDER
  6. ESTRADIOL [Concomitant]

REACTIONS (7)
  - URINARY INCONTINENCE [None]
  - BACK PAIN [None]
  - HYPOAESTHESIA [None]
  - GAIT DISTURBANCE [None]
  - NERVOUS SYSTEM DISORDER [None]
  - SENSORY LOSS [None]
  - FAECAL INCONTINENCE [None]
